FAERS Safety Report 4731896-1 (Version None)
Quarter: 2005Q3

REPORT INFORMATION
  Report Type: 
  Country: None (occurrence: None)
  Receive Date: 20050802
  Receipt Date: 20050712
  Transmission Date: 20060218
  Serious: Yes (Death, Hospitalization, Other)
  Sender: FDA-Public Use
  Company Number: IT-BRISTOL-MYERS SQUIBB COMPANY-13038807

PATIENT
  Age: 57 Year
  Sex: Male

DRUGS (2)
  1. TAXOL [Suspect]
     Indication: BLADDER CANCER
     Route: 042
     Dates: start: 20050623
  2. FENTANYL [Concomitant]
     Indication: PELVIC PAIN
     Route: 062
     Dates: start: 20050531

REACTIONS (7)
  - ANGINA PECTORIS [None]
  - CHEST PAIN [None]
  - PANCYTOPENIA [None]
  - SEPSIS [None]
  - THROMBOCYTOPENIA [None]
  - TRANSAMINASES INCREASED [None]
  - VESICAL FISTULA [None]
